FAERS Safety Report 18398483 (Version 1)
Quarter: 2020Q4

REPORT INFORMATION
  Report Type: Spontaneous
  Country: FI (occurrence: FI)
  Receive Date: 20201019
  Receipt Date: 20201019
  Transmission Date: 20210114
  Serious: Yes (Other)
  Sender: FDA-Public Use
  Company Number: FI-BRISTOL-MYERS SQUIBB COMPANY-BMS-2020-085150

PATIENT
  Age: 18 Year
  Sex: Female

DRUGS (2)
  1. ELIQUIS [Suspect]
     Active Substance: APIXABAN
     Indication: DEEP VEIN THROMBOSIS
     Dosage: 20 MILLIGRAM, DAILY
     Route: 048
     Dates: start: 20200926, end: 20200928
  2. CIPROFLOXACIN KRKA [Concomitant]
     Indication: URINARY TRACT INFECTION
     Dosage: 1 GRAM, DAILY
     Route: 048
     Dates: start: 20200919, end: 20200928

REACTIONS (1)
  - Hepatocellular injury [Recovering/Resolving]

NARRATIVE: CASE EVENT DATE: 20200928
